FAERS Safety Report 4872993-X (Version None)
Quarter: 2005Q4

REPORT INFORMATION
  Report Type: 
  Country: None (occurrence: None)
  Receive Date: 20051201
  Receipt Date: 20050802
  Transmission Date: 20060501
  Serious: No
  Sender: FDA-Public Use
  Company Number: 2005PV000862

PATIENT
  Age: 60 Year
  Sex: Female
  Weight: 114.76 kg

DRUGS (17)
  1. BYETTA [Suspect]
     Indication: DIABETES MELLITUS NON-INSULIN-DEPENDENT
     Dosage: SEE IMAGE
     Route: 058
  2. BYETTA [Suspect]
     Indication: DIABETES MELLITUS NON-INSULIN-DEPENDENT
     Dosage: SEE IMAGE
     Route: 058
     Dates: start: 20050711
  3. AMARYL [Concomitant]
  4. GLUCOPHAGE [Concomitant]
  5. TOPROL-XL [Concomitant]
  6. LISINOPRIL [Concomitant]
  7. AVAPRO [Concomitant]
  8. BLOOD PRESSURE MEDICATION [Concomitant]
  9. STARLIX [Concomitant]
  10. LIPITOR [Concomitant]
  11. HOODIA [Concomitant]
  12. HYTRIN [Concomitant]
  13. PETADOLEX [Concomitant]
  14. FEVERFEW [Concomitant]
  15. LUNESTA [Concomitant]
  16. XANAX [Concomitant]
  17. SYNTHROID [Concomitant]

REACTIONS (9)
  - BLOOD GLUCOSE INCREASED [None]
  - DECREASED APPETITE [None]
  - DIARRHOEA [None]
  - FEELING ABNORMAL [None]
  - HYPERHIDROSIS [None]
  - HYPOGLYCAEMIA [None]
  - MALAISE [None]
  - NAUSEA [None]
  - WEIGHT DECREASED [None]
